FAERS Safety Report 7296497-2 (Version None)
Quarter: 2011Q1

REPORT INFORMATION
  Report Type: 
  Country: None (occurrence: None)
  Receive Date: 20110216
  Receipt Date: 20110202
  Transmission Date: 20110831
  Serious: Yes (Hospitalization, Other)
  Sender: FDA-Public Use
  Company Number: PHHY2010JP56557

PATIENT
  Sex: Male

DRUGS (15)
  1. INTERFERON ALFA [Concomitant]
     Indication: METASTATIC RENAL CELL CARCINOMA
     Dates: start: 20080701
  2. RULID [Suspect]
     Dosage: 150 MG, QD
     Route: 048
  3. MOBIC [Suspect]
     Indication: METASTATIC RENAL CELL CARCINOMA
     Dosage: 10 MG, UNK
     Route: 048
     Dates: start: 20081125, end: 20100929
  4. AZUNOL [Concomitant]
  5. AFINITOR [Suspect]
     Indication: METASTATIC RENAL CELL CARCINOMA
     Dosage: 10 MG, QD
     Route: 048
     Dates: start: 20100616, end: 20100824
  6. NAUZELIN [Concomitant]
     Dosage: 30 MG, UNK
     Route: 048
     Dates: start: 20100629
  7. ALLEGRA [Concomitant]
     Dosage: 120 MG, UNK
     Route: 048
     Dates: start: 20100810
  8. PARIET [Concomitant]
     Indication: PROPHYLAXIS
     Dosage: 10 MG, UNK
     Route: 048
  9. OXYCONTIN [Concomitant]
     Indication: METASTATIC RENAL CELL CARCINOMA
     Dosage: 5 MG, UNK
     Route: 048
  10. ADALAT CC [Concomitant]
     Dosage: 40 MG, UNK
     Route: 048
  11. RED BLOOD CELLS, CONCENTRATED [Concomitant]
     Route: 041
     Dates: start: 20100930, end: 20101013
  12. AFINITOR [Suspect]
     Dosage: 5 MG, UNK
     Route: 048
     Dates: start: 20100831, end: 20100929
  13. DIOVAN [Concomitant]
     Route: 048
  14. TENORMIN [Concomitant]
     Dosage: 50 MG, UNK
     Route: 048
  15. FLUITRAN [Concomitant]
     Dosage: 2 MG, UNK
     Route: 048
     Dates: end: 20100629

REACTIONS (9)
  - NEOPLASM MALIGNANT [None]
  - DECREASED APPETITE [None]
  - DIABETES MELLITUS [None]
  - NAUSEA [None]
  - ANAEMIA [None]
  - DIVERTICULUM INTESTINAL HAEMORRHAGIC [None]
  - HEPATIC FUNCTION ABNORMAL [None]
  - MALAISE [None]
  - PALMAR-PLANTAR ERYTHRODYSAESTHESIA SYNDROME [None]
